FAERS Safety Report 23048302 (Version 1)
Quarter: 2023Q4

REPORT INFORMATION
  Report Type: Spontaneous
  Country: US (occurrence: US)
  Receive Date: 20231010
  Receipt Date: 20231010
  Transmission Date: 20240109
  Serious: Yes (Hospitalization)
  Sender: FDA-Public Use
  Company Number: US-CADILA HEALTHCARE LIMITED-US-ZYDUS-098458

PATIENT

DRUGS (2)
  1. ACETAMINOPHEN [Interacting]
     Active Substance: ACETAMINOPHEN
     Indication: Product used for unknown indication
     Dosage: UNK
     Route: 065
  2. OXYCODONE [Interacting]
     Active Substance: OXYCODONE
     Indication: Product used for unknown indication
     Dosage: UNK
     Route: 065

REACTIONS (5)
  - Mental status changes [Recovered/Resolved]
  - Drug interaction [Unknown]
  - Unresponsive to stimuli [Unknown]
  - Toxicity to various agents [Recovered/Resolved]
  - Overdose [Unknown]
